APPROVED DRUG PRODUCT: RETIN-A
Active Ingredient: TRETINOIN
Strength: 0.05%
Dosage Form/Route: SWAB;TOPICAL
Application: N016921 | Product #002
Applicant: VALEANT INTERNATIONAL BARBADOS SRL
Approved: Approved Prior to Jan 1, 1982 | RLD: No | RS: No | Type: DISCN